FAERS Safety Report 14412324 (Version 2)
Quarter: 2018Q1

REPORT INFORMATION
  Report Type: Report from Study
  Country: GB (occurrence: GB)
  Receive Date: 20180119
  Receipt Date: 20180130
  Transmission Date: 20180509
  Serious: Yes (Death, Life-Threatening, Hospitalization, Other)
  Sender: FDA-Public Use
  Company Number: GB-AMGEN-GBRSL2018007168

PATIENT
  Age: 71 Year
  Sex: Male

DRUGS (3)
  1. IRON [Suspect]
     Active Substance: IRON
     Indication: PRODUCT USED FOR UNKNOWN INDICATION
     Dosage: UNK
     Route: 065
  2. WARFARIN [Concomitant]
     Active Substance: WARFARIN
     Dosage: UNK
  3. ARANESP [Suspect]
     Active Substance: DARBEPOETIN ALFA
     Indication: PRODUCT USED FOR UNKNOWN INDICATION
     Dosage: 40 MCG, UNK
     Route: 065

REACTIONS (6)
  - Death [Fatal]
  - Lower respiratory tract infection [Unknown]
  - Gait inability [Unknown]
  - Ill-defined disorder [Unknown]
  - Fluid retention [Unknown]
  - Urinary retention [Unknown]

NARRATIVE: CASE EVENT DATE: 20180124
